FAERS Safety Report 21556808 (Version 1)
Quarter: 2022Q4

REPORT INFORMATION
  Report Type: Spontaneous
  Country: US (occurrence: None)
  Receive Date: 20221103
  Receipt Date: 20221103
  Transmission Date: 20230113
  Serious: Yes (Life-Threatening)
  Sender: FDA-Public Use
  Company Number: None

PATIENT
  Sex: Male

DRUGS (1)
  1. ABIRATERONE [Suspect]
     Active Substance: ABIRATERONE
     Dosage: 1000 MG DAILY ORAL
     Route: 048

REACTIONS (12)
  - Arthralgia [None]
  - Pelvic pain [None]
  - Musculoskeletal chest pain [None]
  - Arthralgia [None]
  - Pain in extremity [None]
  - Spinal pain [None]
  - Arthralgia [None]
  - Pain in extremity [None]
  - Palpitations [None]
  - Dyspnoea [None]
  - Heart rate increased [None]
  - Metastases to lung [None]
